FAERS Safety Report 7057745-7 (Version None)
Quarter: 2010Q4

REPORT INFORMATION
  Report Type: 
  Country: None (occurrence: None)
  Receive Date: 20101022
  Receipt Date: 20101014
  Transmission Date: 20110411
  Serious: Yes (Other)
  Sender: FDA-Public Use
  Company Number: JP-JNJCH-2010020903

PATIENT
  Sex: Female

DRUGS (1)
  1. ZYRTEC [Suspect]
     Indication: ECZEMA ASTEATOTIC
     Dosage: TEXT:10 MG QD
     Route: 048
     Dates: start: 20100906, end: 20100907

REACTIONS (2)
  - OEDEMA [None]
  - SHOCK [None]
